FAERS Safety Report 5406824-6 (Version None)
Quarter: 2007Q3

REPORT INFORMATION
  Report Type: 
  Country: None (occurrence: None)
  Receive Date: 20070807
  Receipt Date: 20070730
  Transmission Date: 20080115
  Serious: Yes (Disabling)
  Sender: FDA-Public Use
  Company Number: US-ELI_LILLY_AND_COMPANY-US200707002250

PATIENT
  Age: 75 Year
  Sex: Female
  Weight: 48.072 kg

DRUGS (2)
  1. FORTEO [Suspect]
     Indication: OSTEOPOROSIS
     Dosage: 20 UG, DAILY (1/D)
     Dates: start: 20040601, end: 20060501
  2. CALCIUM CHLORIDE [Concomitant]

REACTIONS (5)
  - BASAL CELL CARCINOMA [None]
  - NEUROPATHY PERIPHERAL [None]
  - PERONEAL NERVE PALSY [None]
  - PIGMENTATION DISORDER [None]
  - SQUAMOUS CELL CARCINOMA [None]
